FAERS Safety Report 7771874-1 (Version None)
Quarter: 2011Q3

REPORT INFORMATION
  Report Type: 
  Country: None (occurrence: None)
  Receive Date: 20110922
  Receipt Date: 20110607
  Transmission Date: 20111222
  Serious: No
  Sender: FDA-Public Use
  Company Number: US-ASTRAZENECA-2010SE27983

PATIENT
  Age: 52 Year
  Sex: Male

DRUGS (3)
  1. SEROQUEL XR [Suspect]
     Dosage: 300MG TWO TABLETS AT NIGHT
     Route: 048
  2. SEROQUEL XR [Suspect]
     Route: 048
  3. SEROQUEL XR [Suspect]
     Route: 048

REACTIONS (6)
  - WEIGHT INCREASED [None]
  - DRUG DOSE OMISSION [None]
  - DRUG DEPENDENCE [None]
  - WEIGHT DECREASED [None]
  - INFLUENZA [None]
  - INTENTIONAL DRUG MISUSE [None]
